FAERS Safety Report 6917606-8 (Version None)
Quarter: 2010Q3

REPORT INFORMATION
  Report Type: 
  Country: None (occurrence: None)
  Receive Date: 20100810
  Receipt Date: 20100730
  Transmission Date: 20110219
  Serious: Yes (Hospitalization)
  Sender: FDA-Public Use
  Company Number: KR-ELI_LILLY_AND_COMPANY-KR201006007530

PATIENT
  Age: 69 Year
  Sex: Female

DRUGS (3)
  1. HUMALOG MIX 75/25 [Suspect]
     Indication: TYPE 2 DIABETES MELLITUS
     Dosage: 40 U, DAILY (1/D)
     Route: 058
     Dates: start: 20100401, end: 20100601
  2. HUMALOG MIX 75/25 [Suspect]
     Dosage: 20 U, EACH MORNING
     Route: 058
     Dates: start: 20100601
  3. HUMALOG MIX 75/25 [Suspect]
     Dosage: 10 U, EACH EVENING
     Route: 058
     Dates: start: 20100601

REACTIONS (5)
  - COLD SWEAT [None]
  - DEVICE FAILURE [None]
  - DIZZINESS [None]
  - HYPOGLYCAEMIA [None]
  - HYPOPHAGIA [None]
